FAERS Safety Report 23855262 (Version 2)
Quarter: 2024Q2

REPORT INFORMATION
  Report Type: Spontaneous
  Country: US (occurrence: US)
  Receive Date: 20240514
  Receipt Date: 20240613
  Transmission Date: 20240716
  Serious: Yes (Other)
  Sender: FDA-Public Use
  Company Number: US-ASCENDIS PHARMA-2024US005342

PATIENT

DRUGS (4)
  1. SKYTROFA [Suspect]
     Active Substance: LONAPEGSOMATROPIN-TCGD
     Indication: Growth hormone deficiency
     Dosage: 11 MG, ONCE WEEKLY
     Route: 058
     Dates: start: 20240429
  2. SKYTROFA [Suspect]
     Active Substance: LONAPEGSOMATROPIN-TCGD
     Indication: Hypopituitarism
  3. NUTROPIN [Concomitant]
     Active Substance: SOMATROPIN
     Indication: Growth hormone deficiency
     Dosage: 2.4 MILLIGRAM
     Dates: end: 20240429
  4. VYVANSE [Concomitant]
     Active Substance: LISDEXAMFETAMINE DIMESYLATE
     Indication: Product used for unknown indication
     Dosage: 40 MILLIGRAM
     Dates: end: 20240410

REACTIONS (1)
  - Spinal cord infarction [Recovering/Resolving]

NARRATIVE: CASE EVENT DATE: 20240502
